FAERS Safety Report 9899320 (Version 2)
Quarter: 2014Q1

REPORT INFORMATION
  Report Type: Report from Study
  Country: ES (occurrence: ES)
  Receive Date: 20140214
  Receipt Date: 20140214
  Transmission Date: 20141002
  Serious: Yes (Death, Other)
  Sender: FDA-Public Use
  Company Number: ES-SA-CLOF-1001921

PATIENT
  Age: 78 Year
  Sex: Female
  Weight: 67 kg

DRUGS (4)
  1. CLOFARABINE [Suspect]
     Indication: ACUTE MYELOID LEUKAEMIA
     Dosage: 20 MG/M2, UNK
     Route: 042
     Dates: start: 20111117, end: 20111121
  2. CYTARABINE [Suspect]
     Indication: ACUTE MYELOID LEUKAEMIA
     Dosage: 20 MG/M2, UNK
     Route: 058
     Dates: start: 20111117, end: 20111122
  3. TAZOCEL [Concomitant]
     Indication: PSEUDOMONAS INFECTION
     Dosage: UNK
     Route: 065
  4. FONDAPARINUX [Concomitant]
     Indication: DEEP VEIN THROMBOSIS
     Dosage: UNK
     Route: 065

REACTIONS (5)
  - Hepatic failure [Fatal]
  - Renal failure [Fatal]
  - Toxicity to various agents [Fatal]
  - Hyperbilirubinaemia [Not Recovered/Not Resolved]
  - Palmar-plantar erythrodysaesthesia syndrome [Not Recovered/Not Resolved]
